FAERS Safety Report 5356742-7 (Version None)
Quarter: 2007Q2

REPORT INFORMATION
  Report Type: 
  Country: None (occurrence: None)
  Receive Date: 20070614
  Receipt Date: 20060519
  Transmission Date: 20071010
  Serious: No
  Sender: FDA-Public Use
  Company Number: US-ASTRAZENECA-2006UW09811

PATIENT

DRUGS (4)
  1. ATACAND [Suspect]
     Route: 048
  2. CRESTOR [Suspect]
     Indication: LOW DENSITY LIPOPROTEIN
     Route: 048
  3. TRICOR [Concomitant]
     Indication: BLOOD TRIGLYCERIDES INCREASED
  4. QUESTRAN [Concomitant]

REACTIONS (2)
  - PROTEINURIA [None]
  - TOTAL BILE ACIDS INCREASED [None]
